FAERS Safety Report 7875573-7 (Version None)
Quarter: 2011Q4

REPORT INFORMATION
  Report Type: 
  Country: None (occurrence: None)
  Receive Date: 20111031
  Receipt Date: 20111017
  Transmission Date: 20120403
  Serious: Yes (Other)
  Sender: FDA-Public Use
  Company Number: FR-ELI_LILLY_AND_COMPANY-FR201110007876

PATIENT
  Sex: Female

DRUGS (1)
  1. RALOXIFENE HYDROCHLORIDE [Suspect]
     Route: 048

REACTIONS (3)
  - BREAST CALCIFICATIONS [None]
  - BREAST HYPERPLASIA [None]
  - PROCEDURAL PAIN [None]
